FAERS Safety Report 9474732 (Version 2)
Quarter: 2013Q3

REPORT INFORMATION
  Report Type: Report from Study
  Country: US (occurrence: US)
  Receive Date: 20130823
  Receipt Date: 20130905
  Transmission Date: 20140515
  Serious: Yes (Hospitalization)
  Sender: FDA-Public Use
  Company Number: US-ABBOTT-13P-163-1133472-00

PATIENT
  Age: 55 Year
  Sex: Female

DRUGS (13)
  1. HUMIRA [Suspect]
     Indication: CROHN^S DISEASE
     Dates: start: 20130720, end: 20130720
  2. HUMIRA [Suspect]
     Dates: start: 20130803, end: 20130803
  3. LEVOTHYROXINE [Concomitant]
     Indication: HYPOTHYROIDISM
  4. XANAX [Concomitant]
     Indication: ANXIETY
     Dosage: 2 MG TID PRN
  5. BENTYL [Concomitant]
     Indication: CROHN^S DISEASE
     Dosage: 10 MG Q4H PRN
  6. PRILOSEC [Concomitant]
     Indication: GASTROOESOPHAGEAL REFLUX DISEASE
     Dosage: QAM
  7. TRAZODONE [Concomitant]
     Indication: INSOMNIA
     Dosage: 100MG 1-2 TAB PRN
  8. OXYCODONE HCL ER [Concomitant]
     Indication: PAIN
     Dosage: 30MG Q8H PRN
  9. OXYCODONE HCL ER [Concomitant]
  10. CYMBALTA [Concomitant]
     Indication: PRODUCT USED FOR UNKNOWN INDICATION
  11. PREDNISONE [Concomitant]
     Indication: PRODUCT USED FOR UNKNOWN INDICATION
  12. UNKNOWN MEDICATION STARTS WITH P [Concomitant]
     Indication: ARTHRITIS
  13. EFFEXOR [Concomitant]
     Indication: PRODUCT USED FOR UNKNOWN INDICATION
     Dates: start: 20130730

REACTIONS (6)
  - Heart rate decreased [Unknown]
  - Palpitations [Unknown]
  - Dyspnoea [Recovered/Resolved]
  - Chest pain [Recovered/Resolved]
  - Heart rate increased [Unknown]
  - Hypersomnia [Unknown]
